FAERS Safety Report 22761423 (Version 4)
Quarter: 2024Q1

REPORT INFORMATION
  Report Type: Spontaneous
  Country: US (occurrence: US)
  Receive Date: 20230728
  Receipt Date: 20240112
  Transmission Date: 20240409
  Serious: No
  Sender: FDA-Public Use
  Company Number: US-PFIZER INC-PV202300104905

PATIENT
  Age: 68 Year
  Sex: Female

DRUGS (2)
  1. BRAFTOVI [Suspect]
     Active Substance: ENCORAFENIB
     Indication: Metastatic malignant melanoma
     Dosage: TAKE 150 MG BY MOUTH TWICE DAILY
     Route: 048
  2. MEKTOVI [Suspect]
     Active Substance: BINIMETINIB
     Indication: Metastatic malignant melanoma
     Dosage: TAKE 30 MG BY MOUTH TWICE DAILY
     Route: 048

REACTIONS (2)
  - Product dose omission issue [Unknown]
  - Hypoacusis [Unknown]
